FAERS Safety Report 22527696 (Version 1)
Quarter: 2023Q2

REPORT INFORMATION
  Report Type: Spontaneous
  Country: US (occurrence: US)
  Receive Date: 20230606
  Receipt Date: 20230606
  Transmission Date: 20230722
  Serious: Yes (Other)
  Sender: FDA-Public Use
  Company Number: US-002147023-NVSC2023US128667

PATIENT
  Age: 32 Year
  Sex: Female

DRUGS (4)
  1. LABETALOL HYDROCHLORIDE [Suspect]
     Active Substance: LABETALOL HYDROCHLORIDE
     Indication: Hypertension
     Dosage: 50 MG, QD
     Route: 048
  2. LABETALOL HYDROCHLORIDE [Suspect]
     Active Substance: LABETALOL HYDROCHLORIDE
     Dosage: 200 MG, QD
     Route: 048
  3. BUPRENORPHINE [Suspect]
     Active Substance: BUPRENORPHINE
     Indication: Product used for unknown indication
     Dosage: 4 MG, QD, BEFORE PREGNANCY
     Route: 065
  4. BUPRENORPHINE [Suspect]
     Active Substance: BUPRENORPHINE
     Dosage: 6 MG, QD, INCREASED AT THE TIME OF DELIVERY
     Route: 065

REACTIONS (2)
  - Pre-eclampsia [Unknown]
  - Maternal exposure during pregnancy [Unknown]
